FAERS Safety Report 5530687-1 (Version None)
Quarter: 2007Q4

REPORT INFORMATION
  Report Type: 
  Country: None (occurrence: None)
  Receive Date: 20071128
  Receipt Date: 20071128
  Transmission Date: 20080405
  Serious: Yes (Hospitalization)
  Sender: FDA-Public Use
  Company Number: None

PATIENT
  Age: 84 Year
  Sex: Male
  Weight: 81 kg

DRUGS (1)
  1. AVINZA [Suspect]
     Indication: PAIN
     Dosage: 30MG-60MG DAILY PO
     Route: 048
     Dates: start: 20070826, end: 20070902

REACTIONS (2)
  - ACCIDENTAL OVERDOSE [None]
  - MENTAL STATUS CHANGES [None]
